FAERS Safety Report 4680751-4 (Version None)
Quarter: 2005Q2

REPORT INFORMATION
  Report Type: 
  Country: None (occurrence: None)
  Receive Date: 20050603
  Receipt Date: 20050524
  Transmission Date: 20051028
  Serious: Yes (Disabling)
  Sender: FDA-Public Use
  Company Number: GB-JNJFOC-20050506089

PATIENT
  Age: 48 Year
  Sex: Male
  Weight: 87 kg

DRUGS (4)
  1. REMICADE [Suspect]
     Indication: PSORIATIC ARTHROPATHY
     Dosage: 5 INFUSIONS.
     Route: 042
  2. FOLIC ACID [Concomitant]
     Route: 049
  3. ATENOLOL [Concomitant]
     Indication: HYPERTENSION
     Route: 049
  4. TRAMADOL [Concomitant]
     Route: 049

REACTIONS (1)
  - MONONEUROPATHY MULTIPLEX [None]
